FAERS Safety Report 5043344-5 (Version None)
Quarter: 2006Q2

REPORT INFORMATION
  Report Type: 
  Country: None (occurrence: None)
  Receive Date: 20060629
  Receipt Date: 20060622
  Transmission Date: 20061013
  Serious: Yes (Hospitalization)
  Sender: FDA-Public Use
  Company Number: 2006-02538

PATIENT

DRUGS (1)
  1. FERRLECIT [Suspect]
     Dosage: 250 ML, OVER 2-3 HOURS, INTRAVENOUS
     Route: 042

REACTIONS (2)
  - BACK PAIN [None]
  - NEURALGIA [None]
